FAERS Safety Report 10730098 (Version 2)
Quarter: 2015Q3

REPORT INFORMATION
  Report Type: Spontaneous
  Country: US (occurrence: US)
  Receive Date: 20150122
  Receipt Date: 20150807
  Transmission Date: 20151125
  Serious: Yes (Hospitalization, Other)
  Sender: FDA-Public Use
  Company Number: US-PFIZER INC-2015021646

PATIENT
  Age: 51 Year
  Sex: Female
  Weight: 104.31 kg

DRUGS (4)
  1. TOVIAZ [Suspect]
     Active Substance: FESOTERODINE FUMARATE
     Indication: VERTIGO
     Dosage: 8 MG, UNK
     Dates: start: 20140615, end: 20141229
  2. FAMOTIDINE. [Concomitant]
     Active Substance: FAMOTIDINE
     Indication: ABDOMINAL DISCOMFORT
     Dosage: 10 MG, 1X/DAY
  3. SATRIN [Concomitant]
     Indication: HYPERSENSITIVITY
     Dosage: 10 MG, 1X/DAY
  4. TOVIAZ [Suspect]
     Active Substance: FESOTERODINE FUMARATE
     Indication: URINARY INCONTINENCE
     Dosage: 4 MG, 1X/DAY (AT NIGHT)
     Dates: start: 2013

REACTIONS (6)
  - Eye disorder [Unknown]
  - Visual impairment [Not Recovered/Not Resolved]
  - Product use issue [Unknown]
  - Intraocular pressure increased [Unknown]
  - Pain [Not Recovered/Not Resolved]
  - Glaucoma [Not Recovered/Not Resolved]

NARRATIVE: CASE EVENT DATE: 20141230
